FAERS Safety Report 8450055-2 (Version None)
Quarter: 2012Q2

REPORT INFORMATION
  Report Type: 
  Country: None (occurrence: None)
  Receive Date: 20120614
  Receipt Date: 20120614
  Transmission Date: 20120825
  Serious: Yes (Other)
  Sender: FDA-Public Use
  Company Number: None

PATIENT
  Sex: Female

DRUGS (2)
  1. BUPROPION HCL [Suspect]
     Indication: DEPRESSION
     Dosage: 150MG 1 QAM PO
     Route: 048
     Dates: start: 20061101, end: 20070201
  2. BUPROPION HCL [Suspect]
     Indication: DYSTHYMIC DISORDER
     Dosage: 150MG 1 QAM PO
     Route: 048
     Dates: start: 20061101, end: 20070201

REACTIONS (5)
  - NAUSEA [None]
  - PRODUCT SUBSTITUTION ISSUE [None]
  - DIZZINESS [None]
  - DEPRESSION [None]
  - CONDITION AGGRAVATED [None]
